FAERS Safety Report 15246538 (Version 1)
Quarter: 2018Q3

REPORT INFORMATION
  Report Type: Spontaneous
  Country: US (occurrence: US)
  Receive Date: 20180806
  Receipt Date: 20180806
  Transmission Date: 20181010
  Serious: Yes (Other)
  Sender: FDA-Public Use
  Company Number: US-RADIUS HEALTH, INC.-2018US001681

PATIENT
  Age: 55 Year
  Sex: Female

DRUGS (1)
  1. TYMLOS [Suspect]
     Active Substance: ABALOPARATIDE
     Indication: OSTEOPOROSIS POSTMENOPAUSAL
     Dosage: 80 MCG, DAILY
     Route: 058
     Dates: start: 201712

REACTIONS (4)
  - Weight decreased [Unknown]
  - Eating disorder [Unknown]
  - Oesophageal operation [Unknown]
  - Dizziness [Unknown]

NARRATIVE: CASE EVENT DATE: 201701
